FAERS Safety Report 15450031 (Version 8)
Quarter: 2021Q1

REPORT INFORMATION
  Report Type: Spontaneous
  Country: US (occurrence: US)
  Receive Date: 20181001
  Receipt Date: 20210125
  Transmission Date: 20210419
  Serious: No
  Sender: FDA-Public Use
  Company Number: US-PFIZER INC-2016456734

PATIENT
  Age: 39 Year
  Sex: Female

DRUGS (14)
  1. LYRICA [Suspect]
     Active Substance: PREGABALIN
     Indication: BACK PAIN
     Dosage: 100 MG, 2X/DAY
     Route: 048
  2. ALBUTEROL SULFATE. [Concomitant]
     Active Substance: ALBUTEROL SULFATE
     Dosage: 3 ML, DAILY, (2.5 MG/3 ML), 3?4 TIMES
     Route: 055
  3. KLONOPIN [Concomitant]
     Active Substance: CLONAZEPAM
     Indication: ANXIETY
     Dosage: UNK, AS NEEDED (0.5 ?1 TABLET) TWICE DAILY
  4. PROVENTIL HFA [Concomitant]
     Active Substance: ALBUTEROL SULFATE
     Dosage: UNK, AS NEEDED (90 MCG/ACTUATION 90 MCG/ACTUATION, (90 MCG/ACTUATION EVERY 4?6 HRS)
     Route: 055
  5. MIRENA [Concomitant]
     Active Substance: LEVONORGESTREL
     Dosage: 20 UG, DAILY (20 UG/24 HOURS)
     Route: 015
     Dates: start: 20161127
  6. TYLENOL WITH CODEINE [Concomitant]
     Active Substance: ACETAMINOPHEN\CODEINE PHOSPHATE
     Dosage: 1 DF, AS NEEDED (PARACETAMOL: 300; CODEINE PHOSPHATE: 60 MG)EVERY 12 HOURS
     Route: 048
  7. PANTOPRAZOLE [Concomitant]
     Active Substance: PANTOPRAZOLE
     Dosage: 40 MG, DAILY
     Route: 048
  8. ATENOLOL. [Concomitant]
     Active Substance: ATENOLOL
     Dosage: 25 MG, 2X/DAY
     Route: 048
  9. LYRICA [Suspect]
     Active Substance: PREGABALIN
     Indication: PHANTOM LIMB SYNDROME
     Dosage: 150 MG, 2X/DAY
     Route: 048
  10. VALACYCLOVIR [Concomitant]
     Active Substance: VALACYCLOVIR HYDROCHLORIDE
     Indication: ORAL HERPES
     Dosage: 2 G, 2X/DAY (EVERY 12 HOURS X 1 DAY,  REPEAT ASAP WITH 1ST SIGN OF REOCCURRENCE)
     Route: 048
  11. ZOLOFT [Concomitant]
     Active Substance: SERTRALINE HYDROCHLORIDE
     Dosage: 90 MG, DAILY
     Route: 048
  12. ADVAIR DISKUS [Concomitant]
     Active Substance: FLUTICASONE PROPIONATE\SALMETEROL XINAFOATE
     Dosage: UNK UNK, 4X/DAY(FLUTICASONE PROPIONATE:500UG;SALMETEROL XINAFOATE:50UG) 2 TIMES IN MORNING + EVENING
     Route: 055
  13. LORATADINE. [Concomitant]
     Active Substance: LORATADINE
     Dosage: 10 MG, DAILY
     Route: 048
  14. CYCLOBENZAPRINE. [Concomitant]
     Active Substance: CYCLOBENZAPRINE
     Dosage: 10 MG, AS NEEDED (2?3 TIMES EVERY DAY)
     Route: 048

REACTIONS (1)
  - Therapeutic product effect incomplete [Unknown]
